FAERS Safety Report 11691045 (Version 1)
Quarter: 2015Q4

REPORT INFORMATION
  Report Type: Report from Study
  Country: FR (occurrence: FR)
  Receive Date: 20151102
  Receipt Date: 20151102
  Transmission Date: 20160304
  Serious: Yes (Death, Other)
  Sender: FDA-Public Use
  Company Number: FR-SHIRE-FR201513523

PATIENT
  Age: 59 Year
  Sex: Female

DRUGS (1)
  1. ICATIBANT [Suspect]
     Active Substance: ICATIBANT ACETATE
     Indication: HEREDITARY ANGIOEDEMA
     Dosage: 30 MG, AS REQ^D
     Route: 058

REACTIONS (1)
  - Breast cancer [Fatal]

NARRATIVE: CASE EVENT DATE: 20130501
